FAERS Safety Report 9461485 (Version 3)
Quarter: 2014Q3

REPORT INFORMATION
  Report Type: Report from Study
  Country: FR (occurrence: FR)
  Receive Date: 20130816
  Receipt Date: 20140807
  Transmission Date: 20150326
  Serious: Yes (Hospitalization, Other)
  Sender: FDA-Public Use
  Company Number: PHHY2013FR087956

PATIENT
  Age: 76 Year
  Sex: Female
  Weight: 65 kg

DRUGS (4)
  1. TASIGNA [Suspect]
     Active Substance: NILOTINIB
     Indication: CHRONIC MYELOID LEUKAEMIA
     Dosage: 800 MG, DAILY
     Route: 048
     Dates: start: 20120626, end: 20140718
  2. COVERSYL [Concomitant]
     Active Substance: PERINDOPRIL
     Indication: HYPERTENSION
     Dosage: 2.5 MG, QD
     Dates: start: 2002
  3. KARDEGIC [Concomitant]
     Active Substance: ASPIRIN LYSINE
     Indication: PROPHYLAXIS
     Dosage: 75 MG, DAILY
     Dates: start: 2002
  4. PROCORALAN [Concomitant]
     Active Substance: IVABRADINE
     Indication: ANGINA PECTORIS
     Dosage: 2 DF, DAILY
     Dates: start: 2013

REACTIONS (5)
  - Acute coronary syndrome [Recovering/Resolving]
  - Musculoskeletal pain [Recovering/Resolving]
  - Pain in extremity [Recovering/Resolving]
  - Angina pectoris [Recovered/Resolved]
  - Chest pain [Recovering/Resolving]

NARRATIVE: CASE EVENT DATE: 20130419
